FAERS Safety Report 10731545 (Version 2)
Quarter: 2015Q1

REPORT INFORMATION
  Report Type: Spontaneous
  Country: US (occurrence: US)
  Receive Date: 20150123
  Receipt Date: 20150303
  Transmission Date: 20150721
  Serious: Yes (Other)
  Sender: FDA-Public Use
  Company Number: US-AMGEN-USASP2015005768

PATIENT
  Age: 45 Year
  Sex: Female

DRUGS (2)
  1. CELEBREX [Concomitant]
     Active Substance: CELECOXIB
     Dosage: UNK
  2. ENBREL [Suspect]
     Active Substance: ETANERCEPT
     Indication: RHEUMATOID ARTHRITIS
     Dosage: 50 MG, QWK
     Route: 065

REACTIONS (20)
  - Peripheral swelling [Not Recovered/Not Resolved]
  - Pain in extremity [Not Recovered/Not Resolved]
  - Hypoaesthesia [Not Recovered/Not Resolved]
  - Pain [Recovered/Resolved]
  - Mobility decreased [Not Recovered/Not Resolved]
  - Eye swelling [Recovered/Resolved]
  - Rheumatoid arthritis [Not Recovered/Not Resolved]
  - Migraine [Recovered/Resolved]
  - Somnolence [Recovered/Resolved]
  - Impaired work ability [Not Recovered/Not Resolved]
  - Arthralgia [Not Recovered/Not Resolved]
  - Swelling face [Recovered/Resolved]
  - Panniculitis [Not Recovered/Not Resolved]
  - Sensory loss [Not Recovered/Not Resolved]
  - Plantar fasciitis [Not Recovered/Not Resolved]
  - Neck pain [Recovered/Resolved]
  - Nausea [Recovered/Resolved]
  - Dysstasia [Not Recovered/Not Resolved]
  - Joint swelling [Not Recovered/Not Resolved]
  - Paraesthesia [Not Recovered/Not Resolved]

NARRATIVE: CASE EVENT DATE: 2013
